FAERS Safety Report 17172271 (Version 1)
Quarter: 2019Q4

REPORT INFORMATION
  Report Type: Spontaneous
  Country: MY (occurrence: MY)
  Receive Date: 20191219
  Receipt Date: 20191219
  Transmission Date: 20200122
  Serious: Yes (Other)
  Sender: FDA-Public Use
  Company Number: MY-PFIZER INC-2019544282

PATIENT
  Age: 12 Year
  Sex: Male

DRUGS (1)
  1. SOLU-MEDROL [Suspect]
     Active Substance: METHYLPREDNISOLONE SODIUM SUCCINATE
     Indication: ACUTE DISSEMINATED ENCEPHALOMYELITIS
     Dosage: 300 MG, 3X/DAY
     Route: 042

REACTIONS (1)
  - Bradycardia [Unknown]
